FAERS Safety Report 6033878-9 (Version None)
Quarter: 2009Q1

REPORT INFORMATION
  Report Type: 
  Country: None (occurrence: None)
  Receive Date: 20090109
  Receipt Date: 20090109
  Transmission Date: 20090719
  Serious: Yes (Other)
  Sender: FDA-Public Use
  Company Number: None

PATIENT
  Age: 45 Year
  Sex: Female
  Weight: 57.6068 kg

DRUGS (2)
  1. HYDROXYCHLOROQUINE 200MG [Suspect]
     Indication: ARTHRITIS
     Dosage: 200 MG DAILY PO
     Route: 048
     Dates: start: 20020819, end: 20021118
  2. HYDROXYCHLOROQUINE 200MG [Suspect]
     Indication: SCLERODERMA
     Dosage: 200 MG DAILY PO
     Route: 048
     Dates: start: 20020819, end: 20021118

REACTIONS (2)
  - ABDOMINAL DISCOMFORT [None]
  - ALOPECIA [None]
